FAERS Safety Report 20148710 (Version 1)
Quarter: 2021Q4

REPORT INFORMATION
  Report Type: Spontaneous
  Country: TR (occurrence: TR)
  Receive Date: 20211204
  Receipt Date: 20211204
  Transmission Date: 20220303
  Serious: Yes (Hospitalization, Other)
  Sender: FDA-Public Use
  Company Number: TR-BION-010184

PATIENT
  Age: 30 Year
  Sex: Female
  Weight: 70 kg

DRUGS (2)
  1. VALPROIC ACID [Suspect]
     Active Substance: VALPROIC ACID
     Indication: Bipolar disorder
     Dosage: DOSE WAS INCREASED TO 1000 MG/DAY
  2. LORAZEPAM [Concomitant]
     Active Substance: LORAZEPAM
     Indication: Bipolar disorder

REACTIONS (2)
  - Angioedema [Recovered/Resolved]
  - Product use in unapproved indication [Not Recovered/Not Resolved]
